FAERS Safety Report 24285600 (Version 1)
Quarter: 2024Q3

REPORT INFORMATION
  Report Type: Spontaneous
  Country: JP (occurrence: JP)
  Receive Date: 20240905
  Receipt Date: 20240905
  Transmission Date: 20241017
  Serious: No
  Sender: ASTELLAS
  Company Number: JP-ASTELLAS-2024-AER-001507

PATIENT
  Age: 12 Year
  Weight: 45 kg

DRUGS (2)
  1. VESICARE [Suspect]
     Active Substance: SOLIFENACIN SUCCINATE
     Indication: Product used for unknown indication
     Dosage: 7.5 MG, ONCE DAILY
     Route: 065
  2. SULFAMETHOXAZOLE\TRIMETHOPRIM [Concomitant]
     Active Substance: SULFAMETHOXAZOLE\TRIMETHOPRIM
     Indication: Product used for unknown indication
     Dosage: 0.5 TABLETS, UNKNOWN FREQUENCY
     Route: 065

REACTIONS (1)
  - Product prescribing issue [Unknown]
